FAERS Safety Report 14652305 (Version 1)
Quarter: 2018Q1

REPORT INFORMATION
  Report Type: Spontaneous
  Country: US (occurrence: US)
  Receive Date: 20180316
  Receipt Date: 20180316
  Transmission Date: 20180509
  Serious: Yes (Death, Hospitalization)
  Sender: FDA-Public Use
  Company Number: None

PATIENT
  Age: 69 Year
  Sex: Female
  Weight: 72.7 kg

DRUGS (7)
  1. PACLITAXEL PROTEIN-BOUND PARTICLES (ALBUMIN-BOUND) [Suspect]
     Active Substance: PACLITAXEL
     Dates: end: 20170313
  2. PANTOPRAZOLE [Concomitant]
     Active Substance: PANTOPRAZOLE
  3. METFORMIN [Concomitant]
     Active Substance: METFORMIN HYDROCHLORIDE
  4. GEMCITABINE HYDROCHLORIDE. [Suspect]
     Active Substance: GEMCITABINE HYDROCHLORIDE
     Dates: end: 20170313
  5. DILTIAZEM. [Concomitant]
     Active Substance: DILTIAZEM
  6. LOVASTATIN. [Concomitant]
     Active Substance: LOVASTATIN
  7. METOPROLOL SUCCINATE. [Concomitant]
     Active Substance: METOPROLOL SUCCINATE

REACTIONS (8)
  - Fatigue [None]
  - Asthenia [None]
  - Anaemia [None]
  - Electrolyte imbalance [None]
  - Pleural effusion [None]
  - Dyspnoea [None]
  - Dehydration [None]
  - General physical health deterioration [None]

NARRATIVE: CASE EVENT DATE: 20170325
